FAERS Safety Report 18304086 (Version 1)
Quarter: 2020Q3

REPORT INFORMATION
  Report Type: Spontaneous
  Country: DE (occurrence: DE)
  Receive Date: 20200923
  Receipt Date: 20200923
  Transmission Date: 20201103
  Serious: Yes (Life-Threatening, Hospitalization)
  Sender: FDA-Public Use
  Company Number: DE-MYLANLABS-2020M1081475

PATIENT
  Age: 76 Year
  Sex: Male

DRUGS (18)
  1. ISONIAZID. [Interacting]
     Active Substance: ISONIAZID
     Indication: PRODUCT USED FOR UNKNOWN INDICATION
     Dosage: NK MG, SEIT 11072020
  2. AMLODIPIN                          /00972401/ [Concomitant]
     Active Substance: AMLODIPINE BESYLATE
     Dosage: 10 MG, 1?0?0?0, TABLETTEN
     Route: 048
  3. GLYCOPYRRONIUM BROMIDE;INDACATEROL [Concomitant]
     Active Substance: GLYCOPYRRONIUM\INDACATEROL
     Dosage: 43|85 ?G, 1?0?0?0, TABLETTEN
     Route: 048
  4. TORASEMIDE [Suspect]
     Active Substance: TORSEMIDE
     Indication: PRODUCT USED FOR UNKNOWN INDICATION
     Dosage: 10 MG, 1?0?0?0, TABLETTEN
     Route: 048
  5. MAGALDRAT                          /00141701/ [Concomitant]
     Active Substance: MAGALDRATE
     Dosage: 1600 MG, 0?0?1?0
     Route: 048
  6. METFORMIN [Concomitant]
     Active Substance: METFORMIN HYDROCHLORIDE
     Dosage: 1000 MG, 1?1?1?0, TABLETTEN
     Route: 048
  7. SITAGLIPTIN [Concomitant]
     Active Substance: SITAGLIPTIN
     Dosage: 100 MG, 1?0?0?0, TABLETTEN
     Route: 048
  8. CANDESARTAN. [Concomitant]
     Active Substance: CANDESARTAN
     Dosage: 16 MG, 1?0?1?0, TABLETTEN
     Route: 048
  9. TRIMBOW [Concomitant]
     Active Substance: BECLOMETHASONE DIPROPIONATE\FORMOTEROL FUMARATE\GLYCOPYRROLATE
     Dosage: 87|5|9 ?G, 2?0?2?0, DOSIERAEROSOL
     Route: 055
  10. ETHAMBUTOL [Interacting]
     Active Substance: ETHAMBUTOL HYDROCHLORIDE
     Indication: PRODUCT USED FOR UNKNOWN INDICATION
     Dosage: NK MG, SEIT 11072020
  11. RIFAMPICIN [Interacting]
     Active Substance: RIFAMPIN
     Indication: PRODUCT USED FOR UNKNOWN INDICATION
     Dosage: NK MG, SEIT 11072020
  12. LEVOTHYROXINE SODIUM. [Concomitant]
     Active Substance: LEVOTHYROXINE SODIUM
     Dosage: 175 ?G, 1?0?0?0, TABLETTEN
     Route: 048
  13. NEPRESOL                           /00007602/ [Concomitant]
     Active Substance: HYDRALAZINE HYDROCHLORIDE
     Dosage: NK MG, 1?1?1?0, TABLETTEN
     Route: 048
  14. VITAMIN D                          /00318501/ [Concomitant]
     Active Substance: CHOLECALCIFEROL
     Dosage: 20.000 IE, 5?0?0?0, TROPFEN
     Route: 048
  15. METOPROLOL. [Concomitant]
     Active Substance: METOPROLOL
     Dosage: 95 MG, 1?0?1?0, RETARD?TABLETTEN
     Route: 048
  16. PYRAZINAMID [Interacting]
     Active Substance: PYRAZINAMIDE
     Indication: PRODUCT USED FOR UNKNOWN INDICATION
     Dosage: NK MG, SEIT 11072020
  17. APIXABAN [Interacting]
     Active Substance: APIXABAN
     Indication: PRODUCT USED FOR UNKNOWN INDICATION
     Dosage: 5 MG, 1?0?1?0, TABLETTEN
     Route: 048
  18. PANTOPRAZOL                        /01263201/ [Concomitant]
     Active Substance: PANTOPRAZOLE
     Dosage: 20 MG, 1?0?0?0, TABLETTEN
     Route: 048

REACTIONS (10)
  - Cough [Unknown]
  - Fatigue [Unknown]
  - Pyrexia [Unknown]
  - Night sweats [Unknown]
  - Product monitoring error [Unknown]
  - Haemoptysis [Unknown]
  - Condition aggravated [Unknown]
  - Labelled drug-drug interaction medication error [Unknown]
  - General physical health deterioration [Unknown]
  - Dehydration [Unknown]

NARRATIVE: CASE EVENT DATE: 20200711
